FAERS Safety Report 7039744-4 (Version None)
Quarter: 2010Q4

REPORT INFORMATION
  Report Type: 
  Country: None (occurrence: None)
  Receive Date: 20101012
  Receipt Date: 20101007
  Transmission Date: 20110411
  Serious: Yes (Life-Threatening, Hospitalization)
  Sender: FDA-Public Use
  Company Number: GXKR2009DE02690

PATIENT
  Age: 88 Year
  Sex: Female
  Weight: 73.2 kg

DRUGS (10)
  1. GLYBURIDE [Suspect]
     Indication: TYPE 2 DIABETES MELLITUS
     Dosage: 3.5 MG, QD
     Route: 048
  2. BISOPROLOL (NGX) [Concomitant]
     Indication: HYPERTENSION
     Dosage: 5 MG, QD
     Route: 048
  3. BENALAPRIL [Concomitant]
     Dosage: 10 MG, BID
     Dates: end: 20080401
  4. ACETYLSALICYLIC ACID SRT [Concomitant]
     Route: 048
  5. AGGRENOX [Concomitant]
     Route: 048
  6. ARTHROTEC [Concomitant]
     Route: 048
  7. LACTULOSE [Concomitant]
     Route: 048
  8. PARACETAMOL [Concomitant]
     Route: 048
  9. SIMVASTATIN [Concomitant]
     Route: 048
  10. TRIAMPUR [Concomitant]
     Route: 048

REACTIONS (1)
  - HYPOGLYCAEMIA [None]
